FAERS Safety Report 10379329 (Version 1)
Quarter: 2014Q3

REPORT INFORMATION
  Report Type: Spontaneous
  Country: US (occurrence: None)
  Receive Date: 20140811
  Receipt Date: 20140811
  Transmission Date: 20150326
  Serious: No
  Sender: FDA-Public Use
  Company Number: None

PATIENT
  Age: 52 Year
  Sex: Female
  Weight: 81.65 kg

DRUGS (2)
  1. DULOXETINE [Suspect]
     Active Substance: DULOXETINE
     Indication: ANXIETY
     Dosage: 3 PILLS (90MG) ?ONCE DAILY?TAKEN BY MOUTH
     Route: 048
     Dates: start: 20140611, end: 20140711
  2. DULOXETINE [Suspect]
     Active Substance: DULOXETINE
     Indication: DEPRESSION
     Dosage: 3 PILLS (90MG) ?ONCE DAILY?TAKEN BY MOUTH
     Route: 048
     Dates: start: 20140611, end: 20140711

REACTIONS (3)
  - Product substitution issue [None]
  - Decreased activity [None]
  - Headache [None]

NARRATIVE: CASE EVENT DATE: 20140611
